FAERS Safety Report 7473249-1 (Version None)
Quarter: 2011Q2

REPORT INFORMATION
  Report Type: 
  Country: None (occurrence: None)
  Receive Date: 20110511
  Receipt Date: 20110506
  Transmission Date: 20111010
  Serious: Yes (Death, Hospitalization)
  Sender: FDA-Public Use
  Company Number: B0718227A

PATIENT
  Age: 84 Year
  Sex: Male

DRUGS (4)
  1. ANTIBIOTICS [Concomitant]
  2. BRONCHODILATORS [Concomitant]
  3. SINTROM [Concomitant]
  4. ARIXTRA [Suspect]
     Indication: ATRIAL FIBRILLATION
     Route: 058
     Dates: start: 20110419, end: 20110423

REACTIONS (2)
  - SHOCK [None]
  - HAEMORRHAGE [None]
